FAERS Safety Report 9168328 (Version 1)
Quarter: 2013Q1

REPORT INFORMATION
  Report Type: Spontaneous
  Country: GB (occurrence: None)
  Receive Date: 20130308
  Receipt Date: 20130308
  Transmission Date: 20140127
  Serious: Yes (Other)
  Sender: FDA-Public Use
  Company Number: AUR-APL-2013-01855

PATIENT
  Age: 81 Year
  Sex: Female
  Weight: 62.8 kg

DRUGS (10)
  1. AMLODIPINE (AMLODIPINE) [Suspect]
     Indication: PRODUCT USED FOR UNKNOWN INDICATION
     Dates: start: 20121119
  2. AVAMYS (FLUTICASONE FUROATE) [Concomitant]
  3. BENDROFLUMETHIAZIDE (BENDROFLUMETHIAZIDE) [Concomitant]
  4. CALCICHEW D3 (LEKOVIT CA) [Concomitant]
  5. CLENIL MODULATE (BECLOMETASONE DIPROPIONATE) [Concomitant]
  6. DOMPERIDONE (DOMPEDRIDONE) [Concomitant]
  7. GAVISCON (GAVISCON) [Concomitant]
  8. LOSARTAN (LOSARTAN) [Concomitant]
  9. RABEPRAZOLE (RABEPRAZOLE) [Concomitant]
  10. VENTOLIN (SALBUTAMOL) [Concomitant]

REACTIONS (2)
  - Joint swelling [None]
  - Rash pruritic [None]
